FAERS Safety Report 8523933-3 (Version None)
Quarter: 2012Q3

REPORT INFORMATION
  Report Type: 
  Country: None (occurrence: None)
  Receive Date: 20120720
  Receipt Date: 20120709
  Transmission Date: 20120928
  Serious: Yes (Hospitalization)
  Sender: FDA-Public Use
  Company Number: FR-BRISTOL-MYERS SQUIBB COMPANY-16769572

PATIENT
  Age: 74 Year
  Sex: Female

DRUGS (11)
  1. PROTELOS [Concomitant]
  2. LASIX [Suspect]
     Dosage: TABS
     Route: 048
  3. FLURBIPROFEN [Suspect]
     Dosage: CAPS
     Route: 048
     Dates: end: 20111208
  4. INDAPAMIDE [Suspect]
     Indication: HYPERTENSION
     Dosage: 2MG/0.625 MG ORAL 1 DOSAGE FORM DAILY
     Route: 048
  5. LEVOTHYROXINE SODIUM [Concomitant]
     Dosage: TABS,DOSE:112.58MICROGRAM DAILY
     Route: 048
  6. FENOFIBRATE [Concomitant]
  7. GLUCOPHAGE [Suspect]
     Dosage: 1700MG
     Route: 048
     Dates: end: 20111208
  8. PROPRANOLOL [Concomitant]
     Dosage: TABS,AVLOCARDYL 40 MG TABS DAILY
     Route: 048
  9. AMARYL [Concomitant]
  10. OMEPRAZOLE [Concomitant]
  11. IMOVANE [Concomitant]

REACTIONS (1)
  - RENAL FAILURE ACUTE [None]
